FAERS Safety Report 6177087-1 (Version None)
Quarter: 2009Q2

REPORT INFORMATION
  Report Type: 
  Country: None (occurrence: None)
  Receive Date: 20090430
  Receipt Date: 20090430
  Transmission Date: 20091009
  Serious: Yes (Hospitalization)
  Sender: FDA-Public Use
  Company Number: None

PATIENT
  Age: 60 Year
  Sex: Male

DRUGS (3)
  1. FUROSEMIDE 20 MG [Suspect]
     Indication: OEDEMA
     Dosage: 20 MG ONCE DIALY PO
     Route: 048
     Dates: start: 20081124, end: 20081125
  2. NAPROXEN [Suspect]
     Indication: GOUT
     Dosage: NAPROXEN PO
     Route: 048
     Dates: start: 20081101, end: 20081125
  3. NAPROXEN [Suspect]
     Indication: OSTEOARTHRITIS
     Dosage: NAPROXEN PO
     Route: 048
     Dates: start: 20081101, end: 20081125

REACTIONS (7)
  - ARTHRALGIA [None]
  - BLOOD PRESSURE DECREASED [None]
  - CONDITION AGGRAVATED [None]
  - GOUT [None]
  - OEDEMA PERIPHERAL [None]
  - PAIN IN EXTREMITY [None]
  - RENAL FAILURE ACUTE [None]
